FAERS Safety Report 4596620-4 (Version None)
Quarter: 2005Q1

REPORT INFORMATION
  Report Type: 
  Country: None (occurrence: None)
  Receive Date: 20050228
  Receipt Date: 20050214
  Transmission Date: 20050727
  Serious: Yes (Death, Hospitalization, Other)
  Sender: FDA-Public Use
  Company Number: 2005031559

PATIENT
  Age: 74 Year
  Sex: Female

DRUGS (10)
  1. GABAPENTIN [Suspect]
     Indication: NEUROPATHIC PAIN
     Dosage: 600 MG (300 MG, 2 IN 1 D), ORAL
     Route: 048
  2. GLYBURIDE [Concomitant]
  3. METOPROLOL TARTRATE [Concomitant]
  4. HYZAAR [Concomitant]
  5. FENTANYL [Concomitant]
  6. OMEPRAZOLE [Concomitant]
  7. DOCUSATE SODIUM (DOCUSATE SODIUM) [Concomitant]
  8. BISACODYL (BISACODYL) [Concomitant]
  9. EPOETIN ALFA (EPOETIN ALFA) [Concomitant]
  10. SUCRALFATE [Concomitant]

REACTIONS (9)
  - ARTHROPATHY [None]
  - BREAST CANCER METASTATIC [None]
  - CEREBELLAR SYNDROME [None]
  - COORDINATION ABNORMAL [None]
  - FALL [None]
  - FEAR [None]
  - GAIT DISTURBANCE [None]
  - HYPOREFLEXIA [None]
  - WALKING AID USER [None]
